FAERS Safety Report 10271716 (Version 1)
Quarter: 2014Q3

REPORT INFORMATION
  Report Type: Spontaneous
  Country: US (occurrence: US)
  Receive Date: 20140701
  Receipt Date: 20140701
  Transmission Date: 20150326
  Serious: No
  Sender: FDA-Public Use
  Company Number: US-SA-2014SA029196

PATIENT
  Age: 6 Year
  Sex: Female
  Weight: 15.87 kg

DRUGS (3)
  1. CALCIUM/VITAMIN D [Concomitant]
     Active Substance: CALCIUM\VITAMIN D
     Dosage: DOSE:400 UNIT(S)
     Dates: start: 20140201
  2. CEREZYME [Suspect]
     Active Substance: IMIGLUCERASE
     Indication: GAUCHER^S DISEASE
     Dosage: 2000 UNITS DOSE:50.6 UNIT(S)/KILOGRAM BODYWEIGHT
     Route: 042
     Dates: start: 20140228
  3. MULTIVITAMINS [Concomitant]
     Active Substance: VITAMINS
     Dates: start: 20140201

REACTIONS (3)
  - Rash [Unknown]
  - Malaise [Unknown]
  - Vomiting [Recovered/Resolved]

NARRATIVE: CASE EVENT DATE: 20140228
